FAERS Safety Report 9537612 (Version 2)
Quarter: 2013Q3

REPORT INFORMATION
  Report Type: Spontaneous
  Country: US (occurrence: US)
  Receive Date: 20130919
  Receipt Date: 20130919
  Transmission Date: 20140515
  Serious: Yes (Other)
  Sender: FDA-Public Use
  Company Number: ALCN2013US004620

PATIENT
  Sex: 0

DRUGS (2)
  1. MOXEZA [Suspect]
     Dosage: 1 UNK, UNK
     Route: 047
     Dates: start: 20130802
  2. ERYTHROMYCIN [Concomitant]
     Indication: CONJUNCTIVITIS
     Dosage: UNK GTT, UNK
     Route: 047
     Dates: start: 20130730

REACTIONS (1)
  - Ulcerative keratitis [Unknown]
